FAERS Safety Report 19083091 (Version 1)
Quarter: 2021Q1

REPORT INFORMATION
  Report Type: Spontaneous
  Country: US (occurrence: US)
  Receive Date: 20210331
  Receipt Date: 20210331
  Transmission Date: 20210420
  Serious: Yes (Death)
  Sender: FDA-Public Use
  Company Number: None

PATIENT
  Age: 75 Year
  Sex: Male

DRUGS (1)
  1. REVLIMID [Suspect]
     Active Substance: LENALIDOMIDE
     Indication: MYELODYSPLASTIC SYNDROME
     Dosage: OTHER FREQUENCY:QDX 21/28D;?
     Route: 048
     Dates: start: 20200227, end: 20210311

REACTIONS (1)
  - Death [None]

NARRATIVE: CASE EVENT DATE: 20210311
